FAERS Safety Report 16374931 (Version 3)
Quarter: 2019Q3

REPORT INFORMATION
  Report Type: Spontaneous
  Country: JP (occurrence: JP)
  Receive Date: 20190531
  Receipt Date: 20190926
  Transmission Date: 20191004
  Serious: Yes (Hospitalization, Other)
  Sender: FDA-Public Use
  Company Number: JP-AMGEN-JPNSP2019083518

PATIENT
  Age: 81 Year
  Sex: Male
  Weight: 68.5 kg

DRUGS (10)
  1. PARSABIV [Suspect]
     Active Substance: ETELCALCETIDE HYDROCHLORIDE
     Indication: HYPERPARATHYROIDISM SECONDARY
     Dosage: 5 MILLIGRAM, 3 TIMES/WK
     Route: 010
     Dates: start: 20180621
  2. OXAROL [Concomitant]
     Active Substance: MAXACALCITOL
     Dosage: 7.5 MICROGRAM, 3 TIMES/WK (7.5 UG, Q56H)
     Route: 042
     Dates: start: 20180913, end: 20181004
  3. OXAROL [Concomitant]
     Active Substance: MAXACALCITOL
     Dosage: 5 MICROGRAM, 3 TIMES/WK (5 UG, Q56H)
     Route: 042
     Dates: start: 20180705, end: 20180911
  4. EPOGIN [Concomitant]
     Active Substance: ERYTHROPOIETIN
     Dosage: 9000 DOSAGE FORM, QWK (9000 UNITS, QW)
     Route: 042
  5. OXAROL [Concomitant]
     Active Substance: MAXACALCITOL
     Dosage: 2.5 MICROGRAM, 3 TIMES/WK (2.5 UG, Q56H)
     Route: 042
     Dates: end: 20180703
  6. OXAROL [Concomitant]
     Active Substance: MAXACALCITOL
     Dosage: 5 MICROGRAM, 3 TIMES/WK (5 UG, Q56H)
     Route: 042
     Dates: start: 20181006, end: 20181018
  7. OXAROL [Concomitant]
     Active Substance: MAXACALCITOL
     Dosage: 2.5 MICROGRAM, 3 TIMES/WK (2.5 UG, Q56H)
     Route: 042
     Dates: start: 20181020, end: 20181110
  8. OXAROL [Concomitant]
     Active Substance: MAXACALCITOL
     Dosage: 2.5 MICROGRAM, QWK (2.5 UG, QW)
     Route: 042
     Dates: start: 20181115, end: 20181206
  9. P-TOL [SUCROFERRIC OXYHYDROXIDE] [Concomitant]
     Dosage: 750 MG, EVERYDAY
     Route: 048
     Dates: start: 20181213
  10. OXAROL [Concomitant]
     Active Substance: MAXACALCITOL
     Dosage: 2.5 MICROGRAM, 3 TIMES/WK (2.5 UG, Q56H)
     Route: 042
     Dates: start: 20181208

REACTIONS (3)
  - Cardiac failure congestive [Recovered/Resolved]
  - Angina pectoris [Recovered/Resolved]
  - Peripheral arterial occlusive disease [Recovered/Resolved]

NARRATIVE: CASE EVENT DATE: 20190215
